FAERS Safety Report 15397653 (Version 3)
Quarter: 2019Q1

REPORT INFORMATION
  Report Type: Report from Study
  Country: US (occurrence: US)
  Receive Date: 20180918
  Receipt Date: 20190104
  Transmission Date: 20190417
  Serious: Yes (Other)
  Sender: FDA-Public Use
  Company Number: US-PFIZER INC-2018294338

PATIENT
  Age: 69 Year
  Sex: Female

DRUGS (4)
  1. IBRANCE [Suspect]
     Active Substance: PALBOCICLIB
     Dosage: 100 MG, DAILY
     Route: 048
     Dates: start: 20180714
  2. IBRANCE [Suspect]
     Active Substance: PALBOCICLIB
     Dosage: 100 MG, CYCLIC [7 DAYS ON MEDICATION, 7 DAYS OFF]
     Route: 048
     Dates: start: 20181007
  3. IBRANCE [Suspect]
     Active Substance: PALBOCICLIB
     Dosage: 100 MG, DAILY
     Route: 048
     Dates: start: 20180831
  4. IBRANCE [Suspect]
     Active Substance: PALBOCICLIB
     Indication: BREAST CANCER FEMALE
     Dosage: 125 MG, DAILY
     Route: 048
     Dates: start: 20180710, end: 201807

REACTIONS (11)
  - Red blood cell count decreased [Unknown]
  - White blood cell count increased [Unknown]
  - Stomatitis [Unknown]
  - Fatigue [Unknown]
  - Constipation [Unknown]
  - Oropharyngeal pain [Unknown]
  - Contusion [Recovered/Resolved]
  - Bone marrow failure [Unknown]
  - Pain [Unknown]
  - Diarrhoea [Recovered/Resolved]
  - Sinusitis [Unknown]

NARRATIVE: CASE EVENT DATE: 2018
